FAERS Safety Report 4654876-3 (Version None)
Quarter: 2005Q2

REPORT INFORMATION
  Report Type: 
  Country: None (occurrence: None)
  Receive Date: 20050504
  Receipt Date: 20040625
  Transmission Date: 20051028
  Serious: Yes (Hospitalization)
  Sender: FDA-Public Use
  Company Number: PAR_0003_2005

PATIENT
  Age: 49 Year
  Sex: Male

DRUGS (2)
  1. IBUPROFEN [Suspect]
  2. DICLOFENAC SODIUM [Suspect]

REACTIONS (4)
  - BLOOD CREATININE INCREASED [None]
  - ENDOCARDITIS STAPHYLOCOCCAL [None]
  - OSTEOMYELITIS [None]
  - RENAL FUNCTION TEST ABNORMAL [None]
